FAERS Safety Report 15215681 (Version 1)
Quarter: 2018Q3

REPORT INFORMATION
  Report Type: Spontaneous
  Country: US (occurrence: US)
  Receive Date: 20180730
  Receipt Date: 20180730
  Transmission Date: 20181010
  Serious: No
  Sender: FDA-Public Use
  Company Number: US-BAYER-2018-136072

PATIENT
  Age: 65 Year
  Sex: Male
  Weight: 74.97 kg

DRUGS (4)
  1. LOTRIMIN ULTRA [Suspect]
     Active Substance: BUTENAFINE HYDROCHLORIDE
     Indication: THERAPEUTIC SKIN CARE TOPICAL
     Dosage: 2 DF, UNK
     Route: 061
     Dates: start: 20180716
  2. MULTI?VIT [Concomitant]
     Active Substance: VITAMINS
  3. ACIDOPHILUS [Concomitant]
     Active Substance: LACTOBACILLUS ACIDOPHILUS
  4. FLAXSEED [Concomitant]
     Active Substance: FLAX SEED

REACTIONS (1)
  - Product use issue [Unknown]

NARRATIVE: CASE EVENT DATE: 20180716
